FAERS Safety Report 8910814 (Version 2)
Quarter: 2012Q4

REPORT INFORMATION
  Report Type: 
  Country: JP (occurrence: JP)
  Receive Date: 20121116
  Receipt Date: 20121126
  Transmission Date: 20130627
  Serious: Yes (Other)
  Sender: FDA-Public Use
  Company Number: JP-PFIZER INC-2012283263

PATIENT
  Sex: Female

DRUGS (1)
  1. NAFARELIN ACETATE [Suspect]
     Indication: PRECOCIOUS PUBERTY
     Route: 045

REACTIONS (1)
  - Blood phosphorus increased [Unknown]
